FAERS Safety Report 4393184-5 (Version None)
Quarter: 2004Q3

REPORT INFORMATION
  Report Type: 
  Country: None (occurrence: None)
  Receive Date: 20040702
  Receipt Date: 20040623
  Transmission Date: 20050211
  Serious: Yes (Other)
  Sender: FDA-Public Use
  Company Number: 2004-02-1104

PATIENT
  Age: 31 Year
  Sex: Female

DRUGS (3)
  1. INTRON A [Suspect]
     Indication: MALIGNANT MELANOMA
     Dosage: 20-15 MIU  ;20 MIU TIW  : 15 MIU TIW
     Dates: start: 20030519, end: 20040206
  2. INTRON A [Suspect]
     Indication: MALIGNANT MELANOMA
     Dosage: 20-15 MIU  ;20 MIU TIW  : 15 MIU TIW
     Dates: start: 20030519, end: 20040414
  3. INTRON A [Suspect]
     Indication: MALIGNANT MELANOMA
     Dosage: 20-15 MIU  ;20 MIU TIW  : 15 MIU TIW
     Dates: start: 20040101, end: 20040414

REACTIONS (7)
  - ALOPECIA [None]
  - DRY SKIN [None]
  - FATIGUE [None]
  - INFECTION [None]
  - LYMPHOCELE [None]
  - NEUTROPHIL COUNT DECREASED [None]
  - RASH PAPULAR [None]
